FAERS Safety Report 6452946 (Version 5)
Quarter: 2017Q3

REPORT INFORMATION
  Report Type: Spontaneous
  Country: GB (occurrence: GB)
  Receive Date: 20071026
  Receipt Date: 20170927
  Transmission Date: 20171128
  Serious: Yes (Hospitalization, Disabling, Other)
  Sender: FDA-Public Use
  Company Number: GB-PFIZER INC-2007079517

PATIENT
  Age: 19 Year
  Sex: Female

DRUGS (7)
  1. MEROPENEM. [Concomitant]
     Active Substance: MEROPENEM
     Dosage: 1 G, 3X/DAY
     Dates: start: 200006, end: 2000
  2. AZITHROMYCIN ANHYDROUS. [Concomitant]
     Active Substance: AZITHROMYCIN ANHYDROUS
     Indication: ANTIINFLAMMATORY THERAPY
     Dosage: UNK
     Dates: start: 200006
  3. GENTAMICIN. [Concomitant]
     Active Substance: GENTAMICIN
     Dosage: 120 MG, 2X/DAY
     Route: 042
     Dates: start: 2000, end: 2000
  4. GENTAMICIN. [Concomitant]
     Active Substance: GENTAMICIN
     Dosage: 120 MG, 3X/DAY
     Dates: start: 200006
  5. TOBRAMYCIN. [Suspect]
     Active Substance: TOBRAMYCIN
     Indication: PSEUDOMONAS INFECTION
     Dosage: 140 MG, 3X/DAY
     Route: 042
     Dates: start: 2000, end: 2000
  6. TOBRAMYCIN. [Suspect]
     Active Substance: TOBRAMYCIN
     Dosage: 80 MG, 2X/DAY
     Route: 042
     Dates: start: 2000
  7. MEROPENEM. [Concomitant]
     Active Substance: MEROPENEM
     Dosage: 1 MG, 3X/DAY
     Dates: start: 2000

REACTIONS (6)
  - Tinnitus [Unknown]
  - Acute kidney injury [Unknown]
  - Balance disorder [Unknown]
  - Dizziness [Unknown]
  - Deafness neurosensory [Recovering/Resolving]
  - Toxicity to various agents [Unknown]
